FAERS Safety Report 24664281 (Version 1)
Quarter: 2024Q4

REPORT INFORMATION
  Report Type: Spontaneous
  Country: US (occurrence: US)
  Receive Date: 20241126
  Receipt Date: 20241126
  Transmission Date: 20250115
  Serious: Yes (Life-Threatening, Hospitalization, Other)
  Sender: AUROBINDO
  Company Number: US-MLMSERVICE-20200518-2306332-1

PATIENT
  Age: 8 Year
  Sex: Male

DRUGS (3)
  1. PREDNISONE [Suspect]
     Active Substance: PREDNISONE
     Indication: Immunosuppressant drug therapy
     Dosage: 5 MILLIGRAM, ONCE A DAY
     Route: 065
  2. MYCOPHENOLATE MOFETIL [Suspect]
     Active Substance: MYCOPHENOLATE MOFETIL
     Indication: Immunosuppressant drug therapy
     Dosage: 500 MILLIGRAM
     Route: 065
  3. CYCLOSPORINE [Suspect]
     Active Substance: CYCLOSPORINE
     Indication: Immunosuppressant drug therapy
     Dosage: 125 MILLIGRAM, TWO TIMES A DAY
     Route: 065

REACTIONS (13)
  - Post transplant lymphoproliferative disorder [Unknown]
  - Leukopenia [Recovering/Resolving]
  - Normocytic anaemia [Recovering/Resolving]
  - Thrombocytopenia [Recovering/Resolving]
  - Hyponatraemia [Unknown]
  - Hypoalbuminaemia [Unknown]
  - Hyperkalaemia [Unknown]
  - Myelosuppression [Recovering/Resolving]
  - Pleural effusion [Unknown]
  - Ascites [Unknown]
  - Lymphadenopathy [Unknown]
  - Bacillary angiomatosis [Unknown]
  - Cat scratch disease [Unknown]
